FAERS Safety Report 18510286 (Version 2)
Quarter: 2020Q4

REPORT INFORMATION
  Report Type: Report from Study
  Country: None (occurrence: US)
  Receive Date: 20201117
  Receipt Date: 20201124
  Transmission Date: 20210114
  Serious: Yes (Hospitalization)
  Sender: FDA-Public Use
  Company Number: US-INSMED, INC.-US-INS-20-01646

PATIENT
  Age: 42 Year
  Sex: Male

DRUGS (1)
  1. ARIKAYCE [Suspect]
     Active Substance: AMIKACIN
     Indication: MYCOBACTERIUM AVIUM COMPLEX INFECTION
     Route: 055
     Dates: start: 202005, end: 2020

REACTIONS (3)
  - Lung lobectomy [Unknown]
  - Therapy interrupted [Unknown]
  - Cough [Unknown]

NARRATIVE: CASE EVENT DATE: 2020
